FAERS Safety Report 14316067 (Version 1)
Quarter: 2017Q4

REPORT INFORMATION
  Report Type: Spontaneous
  Country: BR (occurrence: BR)
  Receive Date: 20171222
  Receipt Date: 20171222
  Transmission Date: 20180321
  Serious: Yes (Other)
  Sender: FDA-Public Use
  Company Number: BR-STRIDES ARCOLAB LIMITED-2017SP014797

PATIENT

DRUGS (4)
  1. HYDROXYCHLOROQUINE [Concomitant]
     Active Substance: HYDROXYCHLOROQUINE
     Indication: LUPUS NEPHRITIS
     Dosage: 400 MG, UNKNOWN
     Route: 065
  2. PREDNISOLONE. [Suspect]
     Active Substance: PREDNISOLONE
     Indication: LUPUS NEPHRITIS
     Dosage: 10 MG DAILY
     Route: 065
  3. CYCLOPHOSPHAMIDE. [Suspect]
     Active Substance: CYCLOPHOSPHAMIDE
     Indication: LUPUS NEPHRITIS
     Dosage: UNK
     Route: 065
  4. MYCOPHENOLATE MOFETIL. [Suspect]
     Active Substance: MYCOPHENOLATE MOFETIL
     Indication: LUPUS NEPHRITIS
     Dosage: 2 G DAILY, UNKNOWN
     Route: 065

REACTIONS (13)
  - Pancytopenia [Unknown]
  - Histiocytosis haematophagic [Unknown]
  - Hypofibrinogenaemia [Unknown]
  - Pyrexia [Unknown]
  - Hypertriglyceridaemia [Unknown]
  - Chest pain [Unknown]
  - Off label use [Unknown]
  - Multiple organ dysfunction syndrome [Unknown]
  - Cough [Unknown]
  - Dyspnoea [Unknown]
  - Splenomegaly [Unknown]
  - Hyperferritinaemia [Unknown]
  - Histoplasmosis disseminated [Unknown]
